FAERS Safety Report 5629547-7 (Version None)
Quarter: 2008Q1

REPORT INFORMATION
  Report Type: 
  Country: None (occurrence: None)
  Receive Date: 20080218
  Receipt Date: 20080207
  Transmission Date: 20080703
  Serious: No
  Sender: FDA-Public Use
  Company Number: ES-BAXTER-2008BH001122

PATIENT
  Age: 7 Year
  Sex: Female

DRUGS (1)
  1. GAMMAGARD LIQUID [Suspect]
     Indication: PURPURA
     Route: 065
     Dates: start: 20071224, end: 20071224

REACTIONS (3)
  - PYREXIA [None]
  - RASH [None]
  - VOMITING [None]
